FAERS Safety Report 9422156 (Version 3)
Quarter: 2013Q4

REPORT INFORMATION
  Report Type: Spontaneous
  Country: US (occurrence: US)
  Receive Date: 20130726
  Receipt Date: 20131120
  Transmission Date: 20140711
  Serious: Yes (Hospitalization)
  Sender: FDA-Public Use
  Company Number: US-B.I. PHARMACEUTICALS,INC./RIDGEFIELD-2013-BI-21846BP

PATIENT
  Sex: Male
  Weight: 95.25 kg

DRUGS (15)
  1. PRADAXA [Suspect]
     Indication: ANTICOAGULANT THERAPY
     Dosage: 300 MG
     Route: 048
     Dates: start: 20110321, end: 20111021
  2. CENTRUM SILVER MEN^S [Concomitant]
     Route: 048
  3. FISH OIL [Concomitant]
     Dosage: 1000 MG
     Route: 048
  4. FLOMAX [Concomitant]
     Dosage: 0.4 MG
     Route: 048
  5. MULTAQ [Concomitant]
     Dosage: 800 MG
     Route: 048
  6. OCCUVITE [Concomitant]
     Route: 048
  7. SAW PALMETTO [Concomitant]
     Dosage: 500 MG
     Route: 048
  8. GLUCOSAMINE [Concomitant]
     Dosage: 500 MG
     Route: 048
  9. SIMVASTATIN [Concomitant]
     Dosage: 20 MG
     Route: 048
  10. GINKO BILOBA [Concomitant]
     Dosage: 120 MG
     Route: 048
  11. MULTIVITAMIN [Concomitant]
  12. METOPROLOL TARTRATE [Concomitant]
     Dosage: 150 MG
     Route: 048
  13. PROSTATE HEALTH FORMULA [Concomitant]
     Route: 048
  14. ZOLPIDEM [Concomitant]
  15. LORAZEPAM [Concomitant]

REACTIONS (4)
  - Upper gastrointestinal haemorrhage [Unknown]
  - Haemorrhagic anaemia [Unknown]
  - Haemorrhagic stroke [Unknown]
  - Cerebral haemorrhage [Unknown]
